FAERS Safety Report 9536383 (Version 1)
Quarter: 2013Q2

REPORT INFORMATION
  Report Type: Spontaneous
  Country: US (occurrence: None)
  Receive Date: 20130507
  Receipt Date: 20130507
  Transmission Date: 20140414
  Serious: Yes (Other)
  Sender: FDA-Public Use
  Company Number: PHEH2012US023977

PATIENT
  Age: 37 Year
  Sex: Female

DRUGS (9)
  1. AFINITOR (RAD) [Suspect]
     Indication: TUBEROUS SCLEROSIS
     Route: 048
     Dates: start: 20130725
  2. CELEXA (CITALOPRAM HYDROBROMIDE) [Concomitant]
  3. PHENTERMINE [Concomitant]
  4. LAMOTRIGINE [Concomitant]
  5. METFORMIN [Concomitant]
  6. IRON SUPPLEMENTS (NO INGREDIENTS/SUBSTANCES) [Concomitant]
  7. MULTIVITAMINS (ASCORBIC ACID, ERGOCALCIFEROL, FOLIC ACID, NICOTINAMIDE, PANTHENOL, RETINOL, RIBOFLAVIN, THIAMINE HYDROCHLORIDE) [Concomitant]
  8. ZYPREXA (OLANZAPINE) [Concomitant]
  9. LEVORA (ETHINYLESTRADIOL, LEVONORGESTREL) [Concomitant]

REACTIONS (5)
  - Convulsion [None]
  - Amenorrhoea [None]
  - Blood cholesterol increased [None]
  - Anaemia [None]
  - Hypertension [None]
